FAERS Safety Report 7712238-6 (Version None)
Quarter: 2011Q3

REPORT INFORMATION
  Report Type: 
  Country: None (occurrence: None)
  Receive Date: 20110826
  Receipt Date: 20110824
  Transmission Date: 20111222
  Serious: Yes (Hospitalization)
  Sender: FDA-Public Use
  Company Number: JP-PFIZER INC-2011194050

PATIENT
  Age: 88 Year
  Sex: Female

DRUGS (3)
  1. ZOLOFT [Suspect]
     Indication: DEPRESSION
     Dosage: 25 MG/DAY
     Route: 048
  2. ARICEPT [Concomitant]
     Indication: DEMENTIA
     Dosage: 5 MG/DAY
  3. SELBEX [Concomitant]
     Indication: GASTRIC ULCER
     Dosage: UNK

REACTIONS (2)
  - PNEUMONIA ASPIRATION [None]
  - SOMNOLENCE [None]
